FAERS Safety Report 5869672-9 (Version None)
Quarter: 2008Q3

REPORT INFORMATION
  Report Type: 
  Country: None (occurrence: None)
  Receive Date: 20080904
  Receipt Date: 20080822
  Transmission Date: 20090109
  Serious: Yes (Hospitalization, Other)
  Sender: FDA-Public Use
  Company Number: US-ELI_LILLY_AND_COMPANY-US200808004662

PATIENT
  Age: 46 Year
  Sex: Female

DRUGS (3)
  1. FORTEO [Suspect]
     Dosage: UNK, UNK
     Dates: start: 20040101
  2. ACTONEL [Concomitant]
     Dosage: UNK, UNK
     Dates: start: 20070101
  3. CALCIUM [Concomitant]
     Dosage: 600 MG, 2/D

REACTIONS (7)
  - FIBULA FRACTURE [None]
  - HIP ARTHROPLASTY [None]
  - MEDICAL DEVICE COMPLICATION [None]
  - MUSCULOSKELETAL DISORDER [None]
  - OSTEONECROSIS [None]
  - RIB FRACTURE [None]
  - UPPER LIMB FRACTURE [None]
